FAERS Safety Report 17162778 (Version 1)
Quarter: 2019Q4

REPORT INFORMATION
  Report Type: Spontaneous
  Country: ES (occurrence: ES)
  Receive Date: 20191217
  Receipt Date: 20191217
  Transmission Date: 20200122
  Serious: Yes (Other)
  Sender: FDA-Public Use
  Company Number: ES-AUROBINDO-AUR-APL-2019-105354

PATIENT
  Age: 70 Year
  Sex: Female

DRUGS (1)
  1. BISOPROLOL 5 MG FILM COATED TABLETS [Suspect]
     Active Substance: BISOPROLOL
     Indication: ANGINA UNSTABLE
     Dosage: 2.5 MILLIGRAM, TWO TIMES A DAY
     Route: 048
     Dates: start: 20171101, end: 20191108

REACTIONS (1)
  - Vulvovaginitis [Recovered/Resolved]

NARRATIVE: CASE EVENT DATE: 20190801
